FAERS Safety Report 7194826-1 (Version None)
Quarter: 2010Q4

REPORT INFORMATION
  Report Type: 
  Country: None (occurrence: None)
  Receive Date: 20101223
  Receipt Date: 20100919
  Transmission Date: 20110411
  Serious: Yes (Other)
  Sender: FDA-Public Use
  Company Number: US-AMGEN-KDL439549

PATIENT

DRUGS (1)
  1. ENBREL [Suspect]
     Indication: RHEUMATOID ARTHRITIS
     Dosage: 25 MG, 2 TIMES/WK
     Route: 058
     Dates: start: 20070901

REACTIONS (6)
  - BRONCHITIS CHRONIC [None]
  - CHRONIC SINUSITIS [None]
  - DACRYOSTENOSIS ACQUIRED [None]
  - HEADACHE [None]
  - INFECTION [None]
  - MULTIPLE SCLEROSIS [None]
